FAERS Safety Report 8966810 (Version 1)
Quarter: 2012Q4

REPORT INFORMATION
  Report Type: 
  Country: JP (occurrence: JP)
  Receive Date: 20121217
  Receipt Date: 20121217
  Transmission Date: 20130627
  Serious: Yes (Death, Hospitalization, Other)
  Sender: FDA-Public Use
  Company Number: JP-ASTRAZENECA-2012SE89412

PATIENT
  Age: 1137 Month
  Sex: Female

DRUGS (5)
  1. MEROPEN [Suspect]
     Indication: CHOLANGITIS SUPPURATIVE
     Route: 042
     Dates: start: 20121108, end: 20121123
  2. TAKEPRON [Concomitant]
  3. RECOMODULIN [Concomitant]
  4. GLOBULIN [Concomitant]
  5. GASTER [Concomitant]

REACTIONS (3)
  - Cholangitis suppurative [Fatal]
  - Cardiac failure [Unknown]
  - Thrombocytopenia [Not Recovered/Not Resolved]
